FAERS Safety Report 7019168-6 (Version None)
Quarter: 2010Q3

REPORT INFORMATION
  Report Type: 
  Country: None (occurrence: None)
  Receive Date: 20100928
  Receipt Date: 20100916
  Transmission Date: 20110219
  Serious: Yes (Other)
  Sender: FDA-Public Use
  Company Number: US-ELI_LILLY_AND_COMPANY-US201009005010

PATIENT
  Sex: Male

DRUGS (2)
  1. CIALIS [Suspect]
     Indication: PROSTATIC SPECIFIC ANTIGEN
     Dosage: 5 MG, DAILY (1/D)
  2. CIALIS [Suspect]
     Dosage: 2.5 MG, UNK

REACTIONS (2)
  - OFF LABEL USE [None]
  - PROSTATE CANCER [None]
